FAERS Safety Report 6975111-7 (Version None)
Quarter: 2010Q3

REPORT INFORMATION
  Report Type: 
  Country: None (occurrence: None)
  Receive Date: 20100910
  Receipt Date: 20090212
  Transmission Date: 20110219
  Serious: No
  Sender: FDA-Public Use
  Company Number: US-WYE-H08191609

PATIENT
  Age: 44 Year
  Sex: Female
  Weight: 59.02 kg

DRUGS (6)
  1. PRISTIQ [Suspect]
     Indication: ANXIETY
     Route: 048
     Dates: start: 20090208
  2. PRISTIQ [Suspect]
     Indication: DEPRESSION
  3. LAMOTRIGINE [Concomitant]
  4. LORAZEPAM [Suspect]
     Indication: ANXIETY
  5. LORAZEPAM [Suspect]
  6. QUETIAPINE [Concomitant]

REACTIONS (4)
  - FATIGUE [None]
  - FEELING ABNORMAL [None]
  - GASTROOESOPHAGEAL REFLUX DISEASE [None]
  - HEADACHE [None]
